FAERS Safety Report 13847280 (Version 2)
Quarter: 2017Q3

REPORT INFORMATION
  Report Type: Report from Study
  Country: US (occurrence: US)
  Receive Date: 20170808
  Receipt Date: 20170817
  Transmission Date: 20171127
  Serious: Yes (Hospitalization, Other)
  Sender: FDA-Public Use
  Company Number: US-ARIAD PHARMACEUTICALS, INC-2017US008653

PATIENT
  Sex: Female

DRUGS (2)
  1. ICLUSIG [Suspect]
     Active Substance: PONATINIB
     Indication: ACUTE LYMPHOCYTIC LEUKAEMIA
     Dosage: 45 MG, QD
     Route: 048
     Dates: start: 20170707, end: 20170721
  2. ICLUSIG [Suspect]
     Active Substance: PONATINIB
     Dosage: 45 MG, QD
     Route: 048
     Dates: start: 20170728

REACTIONS (12)
  - Oedema peripheral [Unknown]
  - Groin abscess [Unknown]
  - Proctalgia [Unknown]
  - Haematuria [Unknown]
  - Bladder irrigation [Unknown]
  - Hospitalisation [Not Recovered/Not Resolved]
  - Retinal haemorrhage [Unknown]
  - Chromaturia [Unknown]
  - Asthenia [Unknown]
  - Rash [Unknown]
  - Vision blurred [Unknown]
  - Venous thrombosis [Unknown]
